FAERS Safety Report 5393817-0 (Version None)
Quarter: 2007Q3

REPORT INFORMATION
  Report Type: 
  Country: None (occurrence: None)
  Receive Date: 20070723
  Receipt Date: 20070713
  Transmission Date: 20080115
  Serious: Yes (Other)
  Sender: FDA-Public Use
  Company Number: DE-AMGEN-UK235056

PATIENT

DRUGS (1)
  1. NEULASTA [Suspect]
     Indication: CHEMOTHERAPY
     Route: 065

REACTIONS (1)
  - LEUKOPENIA [None]
